FAERS Safety Report 10209715 (Version 1)
Quarter: 2014Q2

REPORT INFORMATION
  Report Type: Spontaneous
  Country: US (occurrence: US)
  Receive Date: 20140602
  Receipt Date: 20140602
  Transmission Date: 20141212
  Serious: No
  Sender: FDA-Public Use
  Company Number: US-BIOGENIDEC-2014BI051335

PATIENT
  Sex: Female

DRUGS (2)
  1. AVONEX [Suspect]
     Indication: MULTIPLE SCLEROSIS
     Route: 030
  2. COPAXONE [Concomitant]
     Dates: start: 2008, end: 2012

REACTIONS (5)
  - Adverse reaction [Unknown]
  - Influenza [Unknown]
  - Loss of libido [Unknown]
  - Genital hypoaesthesia [Unknown]
  - Vulvovaginal pain [Unknown]
